FAERS Safety Report 4917139-4 (Version None)
Quarter: 2006Q1

REPORT INFORMATION
  Report Type: 
  Country: None (occurrence: None)
  Receive Date: 20060214
  Receipt Date: 20060131
  Transmission Date: 20060701
  Serious: Yes (Other)
  Sender: FDA-Public Use
  Company Number: GB200602000020

PATIENT
  Age: 48 Year
  Sex: Female
  Weight: 75 kg

DRUGS (2)
  1. OLANZAPINE [Suspect]
     Indication: ANXIETY
     Dosage: 10 MG, ORAL
     Route: 048
     Dates: start: 20031219
  2. VENLAFAXINE HCL [Concomitant]

REACTIONS (1)
  - ASPIRATION [None]
